FAERS Safety Report 18529344 (Version 1)
Quarter: 2020Q4

REPORT INFORMATION
  Report Type: Spontaneous
  Country: US (occurrence: US)
  Receive Date: 20201120
  Receipt Date: 20201120
  Transmission Date: 20210114
  Serious: No
  Sender: FDA-Public Use
  Company Number: US-CELGENEUS-USA-20201102892

PATIENT
  Age: 37 Year
  Sex: Female

DRUGS (2)
  1. ZEPOSIA [Suspect]
     Active Substance: OZANIMOD HYDROCHLORIDE
     Dosage: .92 MILLIGRAM
     Route: 048
     Dates: start: 20200912, end: 20201110
  2. ZEPOSIA [Suspect]
     Active Substance: OZANIMOD HYDROCHLORIDE
     Indication: MULTIPLE SCLEROSIS
     Dosage: STARTER KIT
     Route: 048
     Dates: start: 20200905, end: 20200911

REACTIONS (5)
  - Paraesthesia [Recovering/Resolving]
  - Hypoaesthesia [Recovering/Resolving]
  - Multiple sclerosis [Not Recovered/Not Resolved]
  - Paraesthesia oral [Recovering/Resolving]
  - Hypoaesthesia oral [Recovering/Resolving]

NARRATIVE: CASE EVENT DATE: 20201103
